FAERS Safety Report 7865560-7 (Version None)
Quarter: 2011Q4

REPORT INFORMATION
  Report Type: 
  Country: None (occurrence: None)
  Receive Date: 20111028
  Receipt Date: 20110117
  Transmission Date: 20120403
  Serious: No
  Sender: FDA-Public Use
  Company Number: US-GLAXOSMITHKLINE-A0906507A

PATIENT
  Age: 56 Year
  Sex: Female

DRUGS (7)
  1. OMEPRAZOLE [Concomitant]
  2. METOPROLOL TARTRATE [Concomitant]
  3. NORTRIPTYLINE HCL [Concomitant]
  4. VYTORIN [Concomitant]
  5. ADVAIR DISKUS 100/50 [Suspect]
     Indication: ASTHMA
     Dosage: 1PUFF TWICE PER DAY
     Route: 055
     Dates: start: 20100601, end: 20100801
  6. CLONAZEPAM [Concomitant]
  7. LEVOTHYROXINE SODIUM [Concomitant]

REACTIONS (2)
  - INCREASED VISCOSITY OF BRONCHIAL SECRETION [None]
  - LARYNGITIS [None]
